FAERS Safety Report 25201652 (Version 5)
Quarter: 2025Q3

REPORT INFORMATION
  Report Type: Report from Study
  Country: CA (occurrence: CA)
  Receive Date: 20250416
  Receipt Date: 20250917
  Transmission Date: 20251021
  Serious: Yes (Other)
  Sender: CELLTRION
  Company Number: CA-CELLTRION INC.-2025CA010979

PATIENT

DRUGS (1)
  1. USTEKINUMAB [Suspect]
     Active Substance: USTEKINUMAB
     Indication: Psoriasis
     Route: 058
     Dates: start: 20250409

REACTIONS (10)
  - Dysgeusia [Recovered/Resolved]
  - Rhinorrhoea [Recovered/Resolved]
  - Weight increased [Unknown]
  - Pruritus [Recovered/Resolved]
  - Rhinitis [Unknown]
  - Nail infection [Unknown]
  - Omphalitis [Unknown]
  - Therapy interrupted [Unknown]
  - Product distribution issue [Unknown]
  - Intentional product use issue [Unknown]

NARRATIVE: CASE EVENT DATE: 20250409
